FAERS Safety Report 7481313-6 (Version None)
Quarter: 2011Q2

REPORT INFORMATION
  Report Type: 
  Country: None (occurrence: None)
  Receive Date: 20110512
  Receipt Date: 20110512
  Transmission Date: 20111010
  Serious: Yes (Hospitalization, Other)
  Sender: FDA-Public Use
  Company Number: None

PATIENT
  Age: 86 Year
  Sex: Female
  Weight: 74.8435 kg

DRUGS (2)
  1. BENZONATATE [Suspect]
     Indication: COUGH
     Dosage: 1 2X DAILY BY MOUTH 1 TIME
     Route: 048
     Dates: start: 20091220
  2. TESSALON [Suspect]

REACTIONS (4)
  - PAIN [None]
  - LOSS OF CONSCIOUSNESS [None]
  - FALL [None]
  - PAIN IN EXTREMITY [None]
